FAERS Safety Report 21398213 (Version 2)
Quarter: 2022Q4

REPORT INFORMATION
  Report Type: Spontaneous
  Country: US (occurrence: US)
  Receive Date: 20220930
  Receipt Date: 20221117
  Transmission Date: 20230113
  Serious: No
  Sender: FDA-Public Use
  Company Number: US-SANOFI-01296346

PATIENT
  Age: 12 Year
  Sex: Male
  Weight: 36.741 kg

DRUGS (1)
  1. DUPIXENT [Suspect]
     Active Substance: DUPILUMAB
     Indication: Dermatitis atopic
     Dosage: 1.14 ML

REACTIONS (2)
  - Ocular hyperaemia [Unknown]
  - Rash [Unknown]
